FAERS Safety Report 10468191 (Version 6)
Quarter: 2015Q3

REPORT INFORMATION
  Report Type: Spontaneous
  Country: US (occurrence: US)
  Receive Date: 20140922
  Receipt Date: 20150914
  Transmission Date: 20151125
  Serious: Yes (Hospitalization, Other)
  Sender: FDA-Public Use
  Company Number: US-PFIZER INC-2014261269

PATIENT
  Age: 52 Year
  Sex: Female
  Weight: 143 kg

DRUGS (29)
  1. HYDROCHLOROTHIAZIDE. [Concomitant]
     Active Substance: HYDROCHLOROTHIAZIDE
     Dosage: 25 MG, 1X/DAY
     Dates: start: 2012
  2. HYDROCHLOROTHIAZIDE. [Concomitant]
     Active Substance: HYDROCHLOROTHIAZIDE
     Dosage: 25 MG, 2X/DAY
  3. DITROPAN XL [Concomitant]
     Active Substance: OXYBUTYNIN CHLORIDE
     Dosage: 10 MG, 24 DAILY
     Dates: start: 20150223
  4. ACCUPRIL [Concomitant]
     Active Substance: QUINAPRIL HYDROCHLORIDE
     Dosage: 20 MG, DAILY
     Dates: start: 20150223
  5. CANASA [Concomitant]
     Active Substance: MESALAMINE
     Dosage: 1000 MG, DAILY
     Route: 048
     Dates: start: 20090203
  6. LUNESTA [Concomitant]
     Active Substance: ESZOPICLONE
     Indication: INSOMNIA
     Dosage: 3MG, 1 QHS, PRN
     Dates: start: 20090515
  7. LABETALOL HCL [Concomitant]
     Active Substance: LABETALOL HYDROCHLORIDE
     Dosage: 400 MG, 2X/DAY
     Dates: start: 20150223
  8. NITRODISC [Concomitant]
     Active Substance: NITROGLYCERIN
     Dosage: 0.2MG/HR PATCH 24HR, 1 TRANSDERMAL DAILY
     Route: 062
  9. ASACOL [Concomitant]
     Active Substance: MESALAMINE
     Dosage: 800 MG, 4X/DAY
     Dates: start: 20060605
  10. NITROSTAT [Concomitant]
     Active Substance: NITROGLYCERIN
     Indication: CHEST PAIN
     Dosage: 0.4MG 1 SL Q 5 MINS X 3 PRN
     Dates: start: 20070221
  11. LYRICA [Suspect]
     Active Substance: PREGABALIN
     Indication: FIBROMYALGIA
     Dosage: 75 MG, 3X/DAY
     Route: 048
     Dates: start: 20080214, end: 20140901
  12. HYDROCODONE [Concomitant]
     Active Substance: HYDROCODONE
     Dosage: 500 MG, AS NEEDED
  13. DILTIAZEM HCL [Concomitant]
     Active Substance: DILTIAZEM HYDROCHLORIDE
     Dosage: 240 MG, DAILY
     Dates: start: 20150223
  14. PROVENTIL HFA [Concomitant]
     Active Substance: ALBUTEROL SULFATE
     Indication: WHEEZING
     Dosage: 108 (90 BASE) MCG/ACT, 2 (TWO) PUFF(S), Q4 HOURS PRN
     Dates: start: 20121112
  15. HUMIRA [Concomitant]
     Active Substance: ADALIMUMAB
     Dosage: 40 MG/ 0.8ML, WEEKLY
     Dates: start: 20090515
  16. LIPITOR [Concomitant]
     Active Substance: ATORVASTATIN CALCIUM
     Indication: BLOOD CHOLESTEROL ABNORMAL
     Dosage: 20 MG, DAILY
     Dates: start: 20150223
  17. HYDROCHLOROTHIAZIDE. [Concomitant]
     Active Substance: HYDROCHLOROTHIAZIDE
     Dosage: 50 MG, EVERY MORNING
     Dates: start: 20150223
  18. FLEXERIL [Concomitant]
     Active Substance: CYCLOBENZAPRINE HYDROCHLORIDE
     Indication: MUSCLE SPASMS
     Dosage: 10MG 1 Q HS PRN
     Dates: start: 20080125
  19. FLONASE [Concomitant]
     Active Substance: FLUTICASONE PROPIONATE
     Dosage: 50MCG/ACT, 2 (TWO) SPRAY(S) EACH NOSTRIL, QD PM
     Route: 045
     Dates: start: 20150223
  20. HYDROXYZINE HCL [Concomitant]
     Active Substance: HYDROXYZINE HYDROCHLORIDE
     Dosage: 20 MG, 2X/DAY
     Dates: start: 20150114
  21. LYRICA [Suspect]
     Active Substance: PREGABALIN
     Indication: NERVE INJURY
  22. VITAMIN D2 [Concomitant]
     Active Substance: ERGOCALCIFEROL
     Dosage: 50000 IU, WEEKLY
     Dates: start: 201504
  23. VITAMIN D3 [Concomitant]
     Active Substance: CHOLECALCIFEROL
     Dosage: 6000 ML, DAILY
  24. PREMARIN [Concomitant]
     Active Substance: ESTROGENS, CONJUGATED
     Indication: ATROPHIC VULVOVAGINITIS
     Dosage: 0.625 MG/GM, ? APPLICATOR PER VAGINA 2 NIGHTS /WEEK, 1 TUBE
     Route: 067
     Dates: start: 20150223
  25. VITAMIN D 25-HYDROXY [Concomitant]
     Indication: ARTHRALGIA
     Dosage: UNK
  26. ZANTAC [Concomitant]
     Active Substance: RANITIDINE HYDROCHLORIDE
     Dosage: 150 MG, 2X/DAY
     Dates: start: 20150223
  27. LYRICA [Suspect]
     Active Substance: PREGABALIN
     Indication: NEURALGIA
  28. ALLEGRA ALLERGY [Concomitant]
     Active Substance: FEXOFENADINE HYDROCHLORIDE
     Dosage: 180 MG, DAILY
     Dates: start: 20150212
  29. ASPIRIN EC [Concomitant]
     Active Substance: ASPIRIN
     Dosage: 325 MG, DAILY
     Dates: start: 20050818

REACTIONS (7)
  - Gait disturbance [Not Recovered/Not Resolved]
  - Pain [Not Recovered/Not Resolved]
  - Arthropathy [Not Recovered/Not Resolved]
  - Pancreatitis [Recovered/Resolved]
  - Arthropathy [Not Recovered/Not Resolved]
  - Hypokinesia [Unknown]
  - Drug ineffective [Unknown]

NARRATIVE: CASE EVENT DATE: 20120107
